FAERS Safety Report 5963454-5 (Version None)
Quarter: 2008Q4

REPORT INFORMATION
  Report Type: 
  Country: None (occurrence: None)
  Receive Date: 20081120
  Receipt Date: 20081104
  Transmission Date: 20090506
  Serious: Yes (Other)
  Sender: FDA-Public Use
  Company Number: MC200800518

PATIENT
  Age: 58 Year
  Sex: Male

DRUGS (5)
  1. ANGIOMAX [Suspect]
     Indication: ANTICOAGULANT THERAPY
     Dosage: 0.005-0.02 MG/KG, HR, INTRAVENOUS
     Route: 042
  2. ASPIRIN [Suspect]
     Indication: ANTICOAGULANT THERAPY
     Dosage: 81-162 MG, QD
  3. DIPYRIDAMOLE [Suspect]
     Indication: ANTICOAGULANT THERAPY
     Dosage: 75-300 MG, Q8H
  4. PENTOXIFYLLINE [Suspect]
     Indication: ANTICOAGULANT THERAPY
     Dosage: 200-400 MG, Q8H
  5. WARFARIN SODIUM [Suspect]
     Indication: ANTICOAGULANT THERAPY
     Dosage: 2-7.5 MG, QD

REACTIONS (2)
  - DEEP VEIN THROMBOSIS [None]
  - GASTROINTESTINAL DISORDER [None]
